FAERS Safety Report 10103238 (Version 2)
Quarter: 2014Q2

REPORT INFORMATION
  Report Type: Spontaneous
  Country: US (occurrence: US)
  Receive Date: 20140424
  Receipt Date: 20140620
  Transmission Date: 20141212
  Serious: No
  Sender: FDA-Public Use
  Company Number: US-BRISTOL-MYERS SQUIBB COMPANY-20208542

PATIENT
  Age: 74 Year
  Sex: Male
  Weight: 85.26 kg

DRUGS (8)
  1. ELIQUIS [Suspect]
     Indication: ATRIAL FIBRILLATION
     Dosage: 3-5 WEEKS AGO,ONGOING
     Route: 048
     Dates: start: 20140130
  2. ALEVE [Concomitant]
  3. METOPROLOL [Concomitant]
  4. LOSARTAN POTASSIUM + HCTZ [Concomitant]
  5. PRAVASTATIN SODIUM [Concomitant]
  6. BABY ASPIRIN [Concomitant]
  7. FLOMAX [Concomitant]
  8. NORVASC [Concomitant]

REACTIONS (1)
  - Constipation [Not Recovered/Not Resolved]
